FAERS Safety Report 24847103 (Version 1)
Quarter: 2025Q1

REPORT INFORMATION
  Report Type: Spontaneous
  Country: CN (occurrence: CN)
  Receive Date: 20250115
  Receipt Date: 20250115
  Transmission Date: 20250409
  Serious: Yes (Hospitalization)
  Sender: EMD SERONO INC
  Company Number: CN-Merck Healthcare KGaA-2025001436

PATIENT
  Age: 35 Year
  Sex: Female

DRUGS (3)
  1. LUVERIS [Suspect]
     Active Substance: LUTROPIN ALFA
     Indication: Infertility female
     Dates: start: 20241020, end: 20241023
  2. DYDROGESTERONE [Concomitant]
     Active Substance: DYDROGESTERONE
     Indication: Luteal phase deficiency
  3. PROGESTERONE [Concomitant]
     Active Substance: PROGESTERONE
     Indication: Luteal phase deficiency

REACTIONS (1)
  - Ovarian hyperstimulation syndrome [Recovering/Resolving]

NARRATIVE: CASE EVENT DATE: 20241103
